FAERS Safety Report 4342080-8 (Version None)
Quarter: 2004Q2

REPORT INFORMATION
  Report Type: 
  Country: None (occurrence: None)
  Receive Date: 20040420
  Receipt Date: 20040415
  Transmission Date: 20050107
  Serious: Yes (Disabling)
  Sender: FDA-Public Use
  Company Number: US-MERCK-0404USA01617

PATIENT
  Age: 65 Year
  Sex: Female

DRUGS (6)
  1. XANAX [Concomitant]
     Route: 065
  2. METHADONE HCL [Concomitant]
     Route: 065
  3. VIOXX [Suspect]
     Indication: TENDONITIS
     Route: 048
     Dates: start: 20040412, end: 20040401
  4. VIOXX [Suspect]
     Route: 048
     Dates: start: 20040401
  5. ZANAFLEX [Concomitant]
     Route: 065
  6. TOPAMAX [Concomitant]
     Route: 065

REACTIONS (2)
  - FATIGUE [None]
  - FEELING ABNORMAL [None]
